FAERS Safety Report 17404307 (Version 3)
Quarter: 2020Q1

REPORT INFORMATION
  Report Type: Report from Study
  Country: US (occurrence: US)
  Receive Date: 20200211
  Receipt Date: 20200318
  Transmission Date: 20200409
  Serious: Yes (Hospitalization)
  Sender: FDA-Public Use
  Company Number: US-VERTEX PHARMACEUTICALS-2020-002305

PATIENT
  Age: 29 Year
  Sex: Male
  Weight: 68 kg

DRUGS (21)
  1. ADDERALL [Concomitant]
     Active Substance: AMPHETAMINE ASPARTATE\AMPHETAMINE SULFATE\DEXTROAMPHETAMINE SACCHARATE\DEXTROAMPHETAMINE SULFATE
     Indication: ATTENTION DEFICIT/HYPERACTIVITY DISORDER
     Dosage: 20 MG, QD
     Route: 048
     Dates: start: 20100318
  2. CLARITIN [CLARITHROMYCIN] [Concomitant]
     Active Substance: CLARITHROMYCIN
     Indication: SEASONAL ALLERGY
     Dosage: 10 MG, QD
     Route: 048
     Dates: start: 20120518
  3. CREON [Concomitant]
     Active Substance: PANCRELIPASE AMYLASE\PANCRELIPASE LIPASE\PANCRELIPASE PROTEASE
     Indication: PANCREATIC FAILURE
     Dosage: UNK
     Route: 048
     Dates: start: 20070801
  4. OMEPRAZOLE. [Concomitant]
     Active Substance: OMEPRAZOLE
     Dosage: 20-40 MG QD
     Route: 048
     Dates: start: 20200208
  5. HUMALOG [Concomitant]
     Active Substance: INSULIN LISPRO
     Indication: CYSTIC FIBROSIS RELATED DIABETES
     Dosage: 2 UNITS, QD
     Route: 058
     Dates: start: 20200203, end: 20200203
  6. BENADRYL [Concomitant]
     Active Substance: DIPHENHYDRAMINE HYDROCHLORIDE
     Indication: RASH
     Dosage: 25 MG, QD
     Route: 048
     Dates: start: 20200202, end: 20200202
  7. MIRALAX [Concomitant]
     Active Substance: POLYETHYLENE GLYCOL 3350
     Indication: ABDOMINAL PAIN UPPER
     Dosage: 17G, BID
     Route: 048
     Dates: start: 20190128
  8. ALBUTEROL [SALBUTAMOL] [Concomitant]
     Active Substance: ALBUTEROL
     Indication: CYSTIC FIBROSIS LUNG
     Dosage: 180 MICROGRAM, TID
     Route: 055
     Dates: start: 20111226
  9. FLONASE [Concomitant]
     Active Substance: FLUTICASONE PROPIONATE
     Indication: SEASONAL ALLERGY
     Dosage: 50 MICROGRAM, BID
     Route: 045
     Dates: start: 20121005
  10. ALLEVESS [Concomitant]
     Active Substance: CAPSAICIN\MENTHOL
     Indication: BACK PAIN
     Dosage: 220 MG, PRN
     Route: 048
     Dates: start: 20181008
  11. ZADITOR [KETOTIFEN] [Concomitant]
     Indication: SEASONAL ALLERGY
     Dosage: 4 DROPS PRN
     Route: 031
     Dates: start: 20190423
  12. PROTONIX [OMEPRAZOLE] [Concomitant]
     Active Substance: OMEPRAZOLE
     Indication: GASTROOESOPHAGEAL REFLUX DISEASE
     Dosage: 20 MG, BID
     Route: 048
     Dates: start: 20200202, end: 20200207
  13. SINGULAIR [Concomitant]
     Active Substance: MONTELUKAST SODIUM
     Indication: SEASONAL ALLERGY
     Dosage: 10 MG, QD
     Route: 048
     Dates: start: 20080103
  14. OMEPRAZOLE. [Concomitant]
     Active Substance: OMEPRAZOLE
     Dosage: 20-40MG, QD
     Route: 048
     Dates: start: 20190201, end: 20200131
  15. PULMOZYME [Concomitant]
     Active Substance: DORNASE ALFA
     Indication: CYSTIC FIBROSIS LUNG
     Dosage: 2.5 MG, QD
     Route: 055
  16. ADVIL 12HOUR [Concomitant]
     Active Substance: IBUPROFEN
     Indication: PROCTALGIA
     Dosage: 600 MG, PRN
     Route: 048
     Dates: start: 20200127, end: 20200131
  17. ADVAIR HFA [Concomitant]
     Active Substance: FLUTICASONE PROPIONATE\SALMETEROL XINAFOATE
     Indication: CYSTIC FIBROSIS LUNG
     Dosage: 250-50 MCG, BID
     Dates: start: 20070801
  18. ADVIL 12HOUR [Concomitant]
     Active Substance: IBUPROFEN
     Dosage: 400-800 MG PRN
     Route: 048
     Dates: start: 20200207
  19. VX-445/VX-661/VX-770 [Suspect]
     Active Substance: ELEXACAFTOR\IVACAFTOR\TEZACAFTOR
     Indication: CYSTIC FIBROSIS
     Dosage: 100MG, QD,VX445/ 50MG, QD, TEZ/  75MG, QD, IVA/ 150MG, QD, IVA
     Route: 048
     Dates: start: 20191227
  20. AZITHROMYCIN ANHYDROUS. [Concomitant]
     Active Substance: AZITHROMYCIN ANHYDROUS
     Indication: CYSTIC FIBROSIS LUNG
     Dosage: 500 MG, THRICE A WEEK (M-W-F)
     Route: 048
     Dates: start: 20090318, end: 20200131
  21. AZITHROMYCIN ANHYDROUS. [Concomitant]
     Active Substance: AZITHROMYCIN ANHYDROUS
     Dosage: 500 MG MWF
     Route: 048
     Dates: start: 20200210

REACTIONS (1)
  - Proctitis [Recovered/Resolved]

NARRATIVE: CASE EVENT DATE: 20200131
